FAERS Safety Report 8061876-2 (Version None)
Quarter: 2012Q1

REPORT INFORMATION
  Report Type: 
  Country: None (occurrence: None)
  Receive Date: 20120123
  Receipt Date: 20120110
  Transmission Date: 20120608
  Serious: Yes (Death)
  Sender: FDA-Public Use
  Company Number: DE-ELI_LILLY_AND_COMPANY-DE201112002121

PATIENT
  Age: 79 Year
  Sex: Male

DRUGS (3)
  1. FORTEO [Suspect]
     Indication: OSTEOPOROSIS
     Dosage: 20 UG, QD
     Route: 058
     Dates: start: 20111101
  2. CALCIUM [Concomitant]
  3. VITAMIN D [Concomitant]

REACTIONS (3)
  - FRACTURE [None]
  - COMPLETED SUICIDE [None]
  - ADVERSE EVENT [None]
